FAERS Safety Report 7555678-0 (Version None)
Quarter: 2011Q2

REPORT INFORMATION
  Report Type: 
  Country: None (occurrence: None)
  Receive Date: 20110617
  Receipt Date: 20110601
  Transmission Date: 20111010
  Serious: Yes (Other)
  Sender: FDA-Public Use
  Company Number: PHHY2011US48361

PATIENT
  Sex: Female
  Weight: 133 kg

DRUGS (3)
  1. HYALGAN [Concomitant]
  2. COUMADIN [Concomitant]
  3. MIACALCIN [Suspect]
     Route: 045

REACTIONS (2)
  - FALL [None]
  - TIBIA FRACTURE [None]
